FAERS Safety Report 19239895 (Version 2)
Quarter: 2021Q4

REPORT INFORMATION
  Report Type: Report from Study
  Country: DE (occurrence: DE)
  Receive Date: 20210510
  Receipt Date: 20211122
  Transmission Date: 20220303
  Serious: No
  Sender: FDA-Public Use
  Company Number: DE-TAKEDA-2021TUS029123

PATIENT

DRUGS (1)
  1. LANADELUMAB [Suspect]
     Active Substance: LANADELUMAB
     Indication: Hereditary angioedema
     Dosage: UNK
     Route: 065

REACTIONS (1)
  - Helicobacter infection [Recovered/Resolved]

NARRATIVE: CASE EVENT DATE: 20201124
